FAERS Safety Report 14874515 (Version 3)
Quarter: 2018Q2

REPORT INFORMATION
  Report Type: Spontaneous
  Country: DE (occurrence: DE)
  Receive Date: 20180510
  Receipt Date: 20180530
  Transmission Date: 20180711
  Serious: Yes (Hospitalization)
  Sender: FDA-Public Use
  Company Number: DE-PFIZER INC-2018187127

PATIENT
  Age: 49 Year
  Sex: Female
  Weight: 60 kg

DRUGS (6)
  1. MYDOCALM (TOLPERISONE HYDROCHLORIDE) [Suspect]
     Active Substance: TOLPERISONE HYDROCHLORIDE
     Indication: SPINAL PAIN
     Dosage: 50 MG, 3X/DAY
     Route: 048
     Dates: start: 20060222, end: 20060307
  2. ARCOXIA [Suspect]
     Active Substance: ETORICOXIB
     Indication: BACK PAIN
     Dosage: 120 MG, 1X/DAY
     Route: 048
     Dates: start: 20060222, end: 20060307
  3. KATADOLON [Suspect]
     Active Substance: FLUPIRTINE
     Indication: SPINAL PAIN
     Dosage: 100 MG, TID
     Route: 048
     Dates: start: 20060131, end: 20060307
  4. KATADOLON S [Suspect]
     Active Substance: FLUPIRTINE
     Indication: BACK PAIN
     Dosage: 1 DOSAGE FORMS DAILY;
     Route: 048
  5. IBUPROFEN. [Suspect]
     Active Substance: IBUPROFEN
     Indication: BACK PAIN
     Dosage: 1200 MG, 1X/DAY
     Route: 048
  6. FEMIGOA [Concomitant]
     Active Substance: ETHINYL ESTRADIOL\LEVONORGESTREL
     Indication: CONTRACEPTION

REACTIONS (10)
  - Hepatic function abnormal [Recovering/Resolving]
  - Prothrombin time prolonged [None]
  - Hepatitis [Recovering/Resolving]
  - Jaundice [Recovering/Resolving]
  - Blood cholinesterase decreased [None]
  - Serum ferritin increased [None]
  - Gamma-glutamyltransferase increased [Recovering/Resolving]
  - Alanine aminotransferase increased [Recovering/Resolving]
  - Aspartate aminotransferase increased [Recovering/Resolving]
  - Activated partial thromboplastin time prolonged [None]

NARRATIVE: CASE EVENT DATE: 20060308
